FAERS Safety Report 9068640 (Version 1)
Quarter: 2013Q1

REPORT INFORMATION
  Report Type: Spontaneous
  Country: US (occurrence: None)
  Receive Date: 20130212
  Receipt Date: 20130212
  Transmission Date: 20140127
  Serious: Yes (Other)
  Sender: FDA-Public Use
  Company Number: None

PATIENT
  Age: 76 Year
  Sex: Female
  Weight: 58.51 kg

DRUGS (2)
  1. RANEXA [Suspect]
     Indication: ANGINA UNSTABLE
     Dosage: ONE TABLET TWICE A DAY
     Dates: start: 20130131, end: 20130203
  2. RANEXA 500 MG GILEAD [Suspect]
     Indication: ANGINA UNSTABLE
     Dosage: ONE TABLE  TWICE A DAY
     Dates: start: 20130126, end: 20130131

REACTIONS (1)
  - Middle insomnia [None]
